FAERS Safety Report 13959578 (Version 1)
Quarter: 2017Q3

REPORT INFORMATION
  Report Type: Spontaneous
  Country: US (occurrence: None)
  Receive Date: 20170912
  Receipt Date: 20170912
  Transmission Date: 20171128
  Serious: Yes (Hospitalization)
  Sender: FDA-Public Use
  Company Number: None

PATIENT
  Age: 63 Year
  Sex: Female

DRUGS (31)
  1. MYCOPHENOLATE 250MG [Suspect]
     Active Substance: MYCOPHENOLIC ACID
     Indication: RENAL TRANSPLANT
     Route: 048
     Dates: start: 20161201
  2. TYLENOL [Concomitant]
     Active Substance: ACETAMINOPHEN
  3. LEVOFLOXACIN. [Concomitant]
     Active Substance: LEVOFLOXACIN
  4. FLUCONAZOLE. [Concomitant]
     Active Substance: FLUCONAZOLE
  5. CARVEDILOL. [Concomitant]
     Active Substance: CARVEDILOL
  6. BUMETANIDE. [Concomitant]
     Active Substance: BUMETANIDE
  7. GENCRAF [Concomitant]
  8. PREMARIN [Concomitant]
     Active Substance: ESTROGENS, CONJUGATED
  9. LIPITOR [Concomitant]
     Active Substance: ATORVASTATIN CALCIUM
  10. ROSUVASTATIN. [Concomitant]
     Active Substance: ROSUVASTATIN
  11. CLOPIDOGREL [Concomitant]
     Active Substance: CLOPIDOGREL BISULFATE
  12. ONETOUCH TES ULTRA BL [Concomitant]
  13. GENGRAF [Suspect]
     Active Substance: CYCLOSPORINE
     Indication: RENAL TRANSPLANT
     Route: 048
     Dates: start: 20170209
  14. NOVOLIN N [Concomitant]
     Active Substance: INSULIN HUMAN
  15. ALPRAZOLAM. [Concomitant]
     Active Substance: ALPRAZOLAM
  16. PROAIR HFA [Concomitant]
     Active Substance: ALBUTEROL SULFATE
  17. BREO ELLIPTA [Concomitant]
     Active Substance: FLUTICASONE FUROATE\VILANTEROL TRIFENATATE
  18. COREG [Concomitant]
     Active Substance: CARVEDILOL
  19. ASPIRIN. [Concomitant]
     Active Substance: ASPIRIN
  20. BACTRIM [Concomitant]
     Active Substance: SULFAMETHOXAZOLE\TRIMETHOPRIM
  21. VITAMIN C [Concomitant]
     Active Substance: ASCORBIC ACID
  22. AFRIN [Concomitant]
     Active Substance: OXYMETAZOLINE
  23. FAMOTIDINE. [Concomitant]
     Active Substance: FAMOTIDINE
  24. ISOSORB DIN [Concomitant]
  25. BUMETANIDE. [Concomitant]
     Active Substance: BUMETANIDE
  26. NOVOLOG [Concomitant]
     Active Substance: INSULIN ASPART
  27. NORVASC [Concomitant]
     Active Substance: AMLODIPINE BESYLATE
  28. FLUCONAZOLE. [Concomitant]
     Active Substance: FLUCONAZOLE
  29. PROBIOTIC [Concomitant]
     Active Substance: PROBIOTICS NOS
  30. METHENAM HIP [Concomitant]
  31. HYDRALAZINE [Concomitant]
     Active Substance: HYDRALAZINE HYDROCHLORIDE

REACTIONS (1)
  - Myocardial infarction [None]
